FAERS Safety Report 22194634 (Version 1)
Quarter: 2023Q2

REPORT INFORMATION
  Report Type: Spontaneous
  Country: US (occurrence: US)
  Receive Date: 20230411
  Receipt Date: 20230411
  Transmission Date: 20230722
  Serious: No
  Sender: FDA-Public Use
  Company Number: US-BIOGEN-2022BI01100966

PATIENT
  Sex: Female

DRUGS (1)
  1. TECFIDERA [Suspect]
     Active Substance: DIMETHYL FUMARATE
     Indication: Multiple sclerosis
     Route: 050
     Dates: start: 20131108, end: 20171217

REACTIONS (4)
  - Therapeutic response unexpected [Not Recovered/Not Resolved]
  - Hair texture abnormal [Unknown]
  - Alopecia [Unknown]
  - Hair disorder [Unknown]
